FAERS Safety Report 23306643 (Version 2)
Quarter: 2024Q1

REPORT INFORMATION
  Report Type: Report from Study
  Country: US (occurrence: US)
  Receive Date: 20231218
  Receipt Date: 20240108
  Transmission Date: 20240410
  Serious: Yes (Death, Other)
  Sender: FDA-Public Use
  Company Number: US-TAKEDA-2023TUS017257

PATIENT
  Sex: Female
  Weight: 47 kg

DRUGS (8)
  1. BRIGATINIB [Suspect]
     Active Substance: BRIGATINIB
     Indication: Neoplasm malignant
     Dosage: 90 MILLIGRAM, QD
     Route: 065
     Dates: start: 20230207, end: 20230216
  2. BRIGATINIB [Suspect]
     Active Substance: BRIGATINIB
     Indication: Lung neoplasm malignant
     Dosage: 180 MILLIGRAM
     Route: 065
  3. BRIGATINIB [Suspect]
     Active Substance: BRIGATINIB
     Indication: Pancreatic carcinoma
     Dosage: 120 MILLIGRAM, QD
     Route: 048
  4. BRIGATINIB [Suspect]
     Active Substance: BRIGATINIB
     Dosage: 30 MILLIGRAM, QD
     Route: 048
  5. OMEPRAZOLE [Concomitant]
     Active Substance: OMEPRAZOLE
     Dosage: UNK
     Route: 065
  6. TEMAZEPAM [Concomitant]
     Active Substance: TEMAZEPAM
     Indication: Sleep disorder
     Dosage: UNK
     Route: 065
  7. TEMAZEPAM [Concomitant]
     Active Substance: TEMAZEPAM
     Indication: Restless legs syndrome
  8. GABAPENTIN [Concomitant]
     Active Substance: GABAPENTIN
     Indication: Restless legs syndrome
     Dosage: UNK
     Route: 065

REACTIONS (8)
  - Death [Fatal]
  - Hepatic enzyme increased [Unknown]
  - Cough [Unknown]
  - Chest discomfort [Unknown]
  - Decreased appetite [Not Recovered/Not Resolved]
  - Dyspnoea [Unknown]
  - Product dose omission issue [Unknown]
  - Off label use [Unknown]
